FAERS Safety Report 4839323-0 (Version None)
Quarter: 2005Q4

REPORT INFORMATION
  Report Type: 
  Country: None (occurrence: None)
  Receive Date: 20051129
  Receipt Date: 20050105
  Transmission Date: 20060501
  Serious: No
  Sender: FDA-Public Use
  Company Number: US-GLAXOSMITHKLINE-A0539475A

PATIENT
  Age: 30 Year
  Sex: Female
  Weight: 51.4 kg

DRUGS (14)
  1. WELLBUTRIN SR [Suspect]
     Indication: DEPRESSION
     Dosage: 200MG THREE TIMES PER DAY
     Route: 048
  2. EFFEXOR [Concomitant]
  3. SEROQUEL [Concomitant]
  4. KLONOPIN [Concomitant]
  5. SOMA [Concomitant]
  6. MIGRANAL [Concomitant]
  7. COMPAZINE [Concomitant]
  8. ALEVE [Concomitant]
  9. ALBUTEROL [Concomitant]
  10. PREVACID [Concomitant]
  11. ADVAIR DISKUS 100/50 [Concomitant]
  12. M.V.I. [Concomitant]
  13. AMBIEN [Concomitant]
  14. B COMPLEX VITAMINS [Concomitant]

REACTIONS (1)
  - DRUG INEFFECTIVE [None]
